FAERS Safety Report 10331813 (Version 1)
Quarter: 2014Q3

REPORT INFORMATION
  Report Type: Report from Study
  Country: US (occurrence: US)
  Receive Date: 20140722
  Receipt Date: 20140722
  Transmission Date: 20150326
  Serious: Yes (Hospitalization)
  Sender: FDA-Public Use
  Company Number: US-ABBVIE-14P-163-1259919-00

PATIENT
  Age: 51 Year
  Sex: Female

DRUGS (2)
  1. VITAMIN D [Concomitant]
     Active Substance: CHOLECALCIFEROL
     Indication: PRODUCT USED FOR UNKNOWN INDICATION
     Route: 048
  2. HUMIRA [Suspect]
     Active Substance: ADALIMUMAB
     Indication: RHEUMATOID ARTHRITIS
     Dates: start: 201209, end: 201406

REACTIONS (4)
  - Splenic rupture [Unknown]
  - Road traffic accident [Unknown]
  - Lumbar vertebral fracture [Unknown]
  - Concussion [Unknown]

NARRATIVE: CASE EVENT DATE: 20140605
